FAERS Safety Report 5013787-4 (Version None)
Quarter: 2006Q2

REPORT INFORMATION
  Report Type: 
  Country: None (occurrence: None)
  Receive Date: 20060525
  Receipt Date: 20060517
  Transmission Date: 20061013
  Serious: Yes (Death, Life-Threatening, Hospitalization)
  Sender: FDA-Public Use
  Company Number: HQ6180115JAN2003

PATIENT
  Age: 37 Year
  Sex: Male
  Weight: 123.3 kg

DRUGS (14)
  1. MYLOTARG [Suspect]
     Indication: ACUTE MYELOID LEUKAEMIA
     Dosage: 9 MG/M^1 1X PER 1 DAY, INTRAVENOUS
     Route: 042
     Dates: start: 20021231, end: 20021231
  2. AMPHOTERICIN B [Suspect]
     Indication: FUNGAL INFECTION
     Dosage: 60 MG DAILY, INTRAVENOUS
     Route: 042
     Dates: start: 20020104
  3. DEMEROL [Concomitant]
  4. AMILORIDE (AMILORIDE) [Concomitant]
  5. ASCORBIC ACID [Concomitant]
  6. MULTIVITAMINS, PLAIN (MULTIVITAMINS, PLAIN) [Concomitant]
  7. NEURONTIN [Concomitant]
  8. K-DUR 10 [Concomitant]
  9. BENADRYL (DIPHENDRYAMINE HYDROCHLORIDE) [Concomitant]
  10. SOLU-CORTEF [Suspect]
  11. ACETAMINOPHEN [Concomitant]
  12. HYDROCODONE BITARTRATE [Concomitant]
  13. ATIVAN [Concomitant]
  14. SUDAFED 12 HOUR [Concomitant]

REACTIONS (5)
  - ACUTE MYELOID LEUKAEMIA [None]
  - FEBRILE NEUTROPENIA [None]
  - MALIGNANT NEOPLASM PROGRESSION [None]
  - RENAL FAILURE [None]
  - WHITE BLOOD CELL COUNT DECREASED [None]
